FAERS Safety Report 8600341-8 (Version None)
Quarter: 2012Q3

REPORT INFORMATION
  Report Type: 
  Country: None (occurrence: None)
  Receive Date: 20120817
  Receipt Date: 20120815
  Transmission Date: 20120928
  Serious: No
  Sender: FDA-Public Use
  Company Number: US-PFIZER INC-2012200297

PATIENT
  Age: 65 Year
  Sex: Female
  Weight: 61.224 kg

DRUGS (2)
  1. COMBIVENT [Concomitant]
     Dosage: UNK
  2. CHANTIX [Suspect]
     Indication: SMOKING CESSATION THERAPY
     Dosage: 1 MG, 2X/DAY
     Route: 048
     Dates: start: 20120701

REACTIONS (2)
  - TOBACCO USER [None]
  - INCORRECT DOSE ADMINISTERED [None]
